FAERS Safety Report 8455759-3 (Version None)
Quarter: 2012Q2

REPORT INFORMATION
  Report Type: 
  Country: None (occurrence: None)
  Receive Date: 20120621
  Receipt Date: 20120614
  Transmission Date: 20120825
  Serious: Yes (Other)
  Sender: FDA-Public Use
  Company Number: US-PFIZER INC-2012144636

PATIENT

DRUGS (1)
  1. FLAGYL [Suspect]
     Dosage: UNK
     Route: 042

REACTIONS (4)
  - SOMNOLENCE [None]
  - MENINGITIS ASEPTIC [None]
  - DEPRESSED LEVEL OF CONSCIOUSNESS [None]
  - ABDOMINAL PAIN UPPER [None]
